FAERS Safety Report 9521961 (Version 1)
Quarter: 2013Q3

REPORT INFORMATION
  Report Type: Spontaneous
  Country: FR (occurrence: FR)
  Receive Date: 20130913
  Receipt Date: 20130913
  Transmission Date: 20140515
  Serious: Yes (Death, Other)
  Sender: FDA-Public Use
  Company Number: FR-009507513-1309FRA004771

PATIENT
  Sex: Male

DRUGS (1)
  1. NEXPLANON [Suspect]
     Dosage: UNK
     Route: 064
     Dates: start: 20121212

REACTIONS (5)
  - Brain death [Fatal]
  - Acidosis [Fatal]
  - Apgar score low [Fatal]
  - Premature baby [Unknown]
  - Foetal exposure during pregnancy [Unknown]
